FAERS Safety Report 16175732 (Version 1)
Quarter: 2019Q2

REPORT INFORMATION
  Report Type: Spontaneous
  Country: FR (occurrence: FR)
  Receive Date: 20190409
  Receipt Date: 20190409
  Transmission Date: 20190711
  Serious: Yes (Other)
  Sender: FDA-Public Use
  Company Number: FR-PFIZER INC-2019150397

PATIENT
  Age: 57 Year
  Sex: Male

DRUGS (10)
  1. SOLU-MEDROL [Suspect]
     Active Substance: METHYLPREDNISOLONE SODIUM SUCCINATE
     Indication: PROPHYLAXIS
     Dosage: 80 MG, CYCLIC
     Route: 042
     Dates: start: 20190206, end: 20190206
  2. FLUOROURACILE [Concomitant]
     Active Substance: FLUOROURACIL
  3. GLICLAZIDE [Concomitant]
     Active Substance: GLICLAZIDE
  4. INNOHEP [Concomitant]
     Active Substance: TINZAPARIN SODIUM
  5. EZETROL [Concomitant]
     Active Substance: EZETIMIBE
  6. NICORANDIL [Concomitant]
     Active Substance: NICORANDIL
  7. VALSARTAN. [Concomitant]
     Active Substance: VALSARTAN
  8. NEBIVOLOL. [Concomitant]
     Active Substance: NEBIVOLOL
  9. IRINOTECAN [Concomitant]
     Active Substance: IRINOTECAN
  10. AVASTIN [Concomitant]
     Active Substance: BEVACIZUMAB

REACTIONS (3)
  - Mouth haemorrhage [Recovered/Resolved]
  - Thrombocytopenia [Recovered/Resolved]
  - Abdominal pain [Recovered/Resolved]

NARRATIVE: CASE EVENT DATE: 20190206
